FAERS Safety Report 8133638-9 (Version None)
Quarter: 2012Q1

REPORT INFORMATION
  Report Type: 
  Country: None (occurrence: None)
  Receive Date: 20120213
  Receipt Date: 20120130
  Transmission Date: 20120608
  Serious: Yes (Hospitalization)
  Sender: FDA-Public Use
  Company Number: ES-ROCHE-1035474

PATIENT
  Age: 32 Year
  Sex: Male

DRUGS (6)
  1. CISPLATIN [Interacting]
     Indication: GASTRIC CANCER
     Route: 042
     Dates: end: 20110727
  2. EPIRUBICIN [Interacting]
     Indication: GASTRIC CANCER
     Route: 042
     Dates: end: 20110727
  3. XELODA [Suspect]
     Indication: GASTRIC CANCER
     Route: 048
     Dates: start: 20110224, end: 20110809
  4. ZOFRAN [Concomitant]
     Indication: PREMEDICATION
     Route: 048
  5. ACETAMINOPHEN [Concomitant]
     Indication: PAIN
     Route: 048
  6. FORTECORTIN [Concomitant]
     Indication: PREMEDICATION
     Route: 048

REACTIONS (5)
  - OESOPHAGITIS [None]
  - ANAEMIA [None]
  - AGRANULOCYTOSIS [None]
  - ABNORMAL LOSS OF WEIGHT [None]
  - MALNUTRITION [None]
